FAERS Safety Report 14665901 (Version 1)
Quarter: 2018Q1

REPORT INFORMATION
  Report Type: Spontaneous
  Country: PL (occurrence: PL)
  Receive Date: 20180321
  Receipt Date: 20180321
  Transmission Date: 20180509
  Serious: Yes (Other)
  Sender: FDA-Public Use
  Company Number: PL-GILEAD-2018-0326072

PATIENT
  Age: 39 Year
  Sex: Male

DRUGS (7)
  1. HARVONI [Suspect]
     Active Substance: LEDIPASVIR\SOFOSBUVIR
     Indication: CHRONIC HEPATITIS C
     Dosage: UNK
     Route: 048
     Dates: start: 20161026, end: 20170118
  2. CYCLAID [Concomitant]
     Active Substance: CYCLOSPORINE
     Indication: PROPHYLAXIS AGAINST TRANSPLANT REJECTION
     Dosage: 125 MG, QD
     Route: 048
     Dates: start: 1994, end: 20161015
  3. XARTAN                             /01121601/ [Concomitant]
  4. CYCLAID [Concomitant]
     Active Substance: CYCLOSPORINE
     Dosage: 150 MG, QD
     Route: 048
     Dates: start: 20161015
  5. MILURIT [Concomitant]
     Active Substance: ALLOPURINOL
  6. COPEGUS [Concomitant]
     Active Substance: RIBAVIRIN
  7. ENCORTON                           /00044701/ [Concomitant]
     Active Substance: PREDNISONE

REACTIONS (1)
  - Drug level decreased [Recovered/Resolved]

NARRATIVE: CASE EVENT DATE: 20161215
